FAERS Safety Report 15673258 (Version 1)
Quarter: 2018Q4

REPORT INFORMATION
  Report Type: Not Available
  Country: US (occurrence: US)
  Receive Date: 20181129
  Receipt Date: 20181129
  Transmission Date: 20190205
  Serious: No
  Sender: FDA-Public Use
  Company Number: US-NEUROCRINE BIOSCIENCES INC.-2018NBI03158

PATIENT
  Age: 55 Year
  Sex: Female

DRUGS (1)
  1. INGREZZA [Suspect]
     Active Substance: VALBENAZINE
     Indication: TARDIVE DYSKINESIA
     Route: 048
     Dates: start: 20181003

REACTIONS (5)
  - Weight increased [Unknown]
  - Drooling [Unknown]
  - Constipation [Unknown]
  - Salivary hypersecretion [Unknown]
  - Tremor [Unknown]

NARRATIVE: CASE EVENT DATE: 2018
